FAERS Safety Report 25997478 (Version 1)
Quarter: 2025Q4

REPORT INFORMATION
  Report Type: Report from Study
  Country: EU (occurrence: EU)
  Receive Date: 20251104
  Receipt Date: 20251104
  Transmission Date: 20260118
  Serious: Yes (Hospitalization)
  Sender: ABBVIE
  Company Number: EU-ABBVIE-6434784

PATIENT
  Age: 80 Year
  Sex: Male

DRUGS (3)
  1. CARBIDOPA\LEVODOPA [Suspect]
     Active Substance: CARBIDOPA\LEVODOPA
     Indication: Parkinson^s disease
     Route: 050
     Dates: start: 20220801
  2. CARBIDOPA\LEVODOPA [Suspect]
     Active Substance: CARBIDOPA\LEVODOPA
     Dosage: MD: 6.0 ML; CRT: 3.4 ML/H, ED: 3.0 ML, AVERAGE 1-2 TIMES A DAY
     Route: 050
     Dates: start: 20220801
  3. CARBIDOPA\LEVODOPA [Suspect]
     Active Substance: CARBIDOPA\LEVODOPA
     Dosage: MD: 6.0 ML; CRT: 3.0 ML/H, ED: 3.0 ML
     Route: 050

REACTIONS (6)
  - Device connection issue [Not Recovered/Not Resolved]
  - Immobile [Not Recovered/Not Resolved]
  - Gait disturbance [Recovering/Resolving]
  - Freezing phenomenon [Not Recovered/Not Resolved]
  - Dysphagia [Not Recovered/Not Resolved]
  - Device leakage [Unknown]
